FAERS Safety Report 8920339 (Version 1)
Quarter: 2012Q4

REPORT INFORMATION
  Report Type: 
  Country: US (occurrence: US)
  Receive Date: 20121122
  Receipt Date: 20121122
  Transmission Date: 20130627
  Serious: No
  Sender: FDA-Public Use
  Company Number: US-JNJFOC-20121104748

PATIENT
  Age: 53 Year
  Sex: Male
  Weight: 81.65 kg

DRUGS (5)
  1. DURAGESIC [Suspect]
     Indication: PAIN
     Route: 062
     Dates: start: 20121107
  2. CYMBALTA [Concomitant]
     Indication: DEPRESSION
     Route: 065
  3. CELEXA [Concomitant]
     Indication: DEPRESSION
     Route: 065
  4. WELLBUTRIN [Concomitant]
     Indication: DEPRESSION
     Route: 065
  5. GABAPENTIN [Concomitant]
     Indication: NEURALGIA
     Route: 065

REACTIONS (2)
  - Product quality issue [Unknown]
  - Drug dose omission [Not Recovered/Not Resolved]
